FAERS Safety Report 16729786 (Version 6)
Quarter: 2020Q2

REPORT INFORMATION
  Report Type: Report from Study
  Country: None (occurrence: US)
  Receive Date: 20190822
  Receipt Date: 20200505
  Transmission Date: 20200713
  Serious: Yes (Hospitalization, Other)
  Sender: FDA-Public Use
  Company Number: US-ABBVIE-19K-163-2892766-00

PATIENT
  Age: 69 Year
  Sex: Male
  Weight: 79 kg

DRUGS (2)
  1. HUMIRA [Suspect]
     Active Substance: ADALIMUMAB
     Indication: CROHN^S DISEASE
     Route: 058
  2. IMURAN [Concomitant]
     Active Substance: AZATHIOPRINE
     Indication: PRODUCT USED FOR UNKNOWN INDICATION

REACTIONS (15)
  - Nausea [Unknown]
  - Large intestinal obstruction [Not Recovered/Not Resolved]
  - Insomnia [Not Recovered/Not Resolved]
  - Skin cancer [Unknown]
  - Large intestine polyp [Unknown]
  - Pain [Not Recovered/Not Resolved]
  - Precancerous skin lesion [Unknown]
  - Headache [Unknown]
  - Memory impairment [Unknown]
  - Gastrointestinal tract irritation [Unknown]
  - Dysphonia [Not Recovered/Not Resolved]
  - Crohn^s disease [Unknown]
  - Malaise [Unknown]
  - Colitis [Unknown]
  - Influenza like illness [Not Recovered/Not Resolved]

NARRATIVE: CASE EVENT DATE: 2019
